FAERS Safety Report 26113983 (Version 1)
Quarter: 2025Q4

REPORT INFORMATION
  Report Type: Spontaneous
  Country: US (occurrence: US)
  Receive Date: 20251202
  Receipt Date: 20251202
  Transmission Date: 20260118
  Serious: No
  Sender: JOHNSON AND JOHNSON
  Company Number: US-JNJFOC-20251159386

PATIENT

DRUGS (2)
  1. INLEXZO [Suspect]
     Active Substance: GEMCITABINE
     Indication: Product used for unknown indication
     Route: 043
     Dates: start: 20251103, end: 20251113
  2. INLEXZO [Suspect]
     Active Substance: GEMCITABINE

REACTIONS (2)
  - Bladder discomfort [Unknown]
  - Device deposit issue [Unknown]

NARRATIVE: CASE EVENT DATE: 20251114
